FAERS Safety Report 7473703-2 (Version None)
Quarter: 2011Q2

REPORT INFORMATION
  Report Type: 
  Country: None (occurrence: None)
  Receive Date: 20110511
  Receipt Date: 20110411
  Transmission Date: 20111010
  Serious: Yes (Other)
  Sender: FDA-Public Use
  Company Number: US-BAYER-2011-015974

PATIENT
  Age: 22 Year
  Sex: Female

DRUGS (1)
  1. MIRENA [Suspect]
     Indication: CONTRACEPTION
     Dosage: 20 MCG/24HR, CONT
     Route: 015
     Dates: start: 20101101, end: 20110308

REACTIONS (7)
  - OVARIAN CYST [None]
  - OEDEMA PERIPHERAL [None]
  - OVARIAN CYST RUPTURED [None]
  - ALOPECIA [None]
  - DYSMENORRHOEA [None]
  - MENORRHAGIA [None]
  - METRORRHAGIA [None]
